FAERS Safety Report 15148595 (Version 1)
Quarter: 2018Q3

REPORT INFORMATION
  Report Type: Spontaneous
  Country: DE (occurrence: DE)
  Receive Date: 20180716
  Receipt Date: 20180716
  Transmission Date: 20181010
  Serious: Yes (Other)
  Sender: FDA-Public Use
  Company Number: DE-PFIZER INC-2017554579

PATIENT
  Age: 74 Year
  Sex: Female

DRUGS (5)
  1. ASS 100 [Concomitant]
     Active Substance: ASPIRIN
     Indication: ANTICOAGULANT THERAPY
     Dosage: UNK
  2. RAMIPRIL RATIOPHARM [Concomitant]
     Active Substance: RAMIPRIL
     Dosage: 5 MG, DAILY, FOR SEVERAL YEARS
  3. TAMOXIFEN [Suspect]
     Active Substance: TAMOXIFEN
     Dosage: UNK
     Route: 048
     Dates: start: 2012
  4. AROMASIN [Suspect]
     Active Substance: EXEMESTANE
     Indication: BREAST CANCER FEMALE
     Dosage: 25 MG, 1X/DAY
     Route: 048
     Dates: start: 201308, end: 20171228
  5. RAMILICH [Concomitant]
     Active Substance: RAMIPRIL
     Dosage: FOR SEVERAL YEARS

REACTIONS (6)
  - Insomnia [Recovering/Resolving]
  - Eye disorder [Recovering/Resolving]
  - Dizziness [Not Recovered/Not Resolved]
  - Disturbance in attention [Not Recovered/Not Resolved]
  - Uterine mass [Unknown]
  - Neoplasm progression [Recovered/Resolved]

NARRATIVE: CASE EVENT DATE: 20140401
